FAERS Safety Report 7649305-1 (Version None)
Quarter: 2011Q3

REPORT INFORMATION
  Report Type: 
  Country: None (occurrence: None)
  Receive Date: 20110802
  Receipt Date: 20110714
  Transmission Date: 20111222
  Serious: No
  Sender: FDA-Public Use
  Company Number: US-B.I. PHARMACEUTICALS,INC./RIDGEFIELD-2011-BP-17742BP

PATIENT
  Sex: Female

DRUGS (10)
  1. NIFEDIPINE [Concomitant]
     Indication: HYPERTENSION
     Dosage: 30 MG
     Route: 048
  2. CALCIUM ACETATE [Concomitant]
     Indication: SUPPLEMENTATION THERAPY
  3. VITAMIN B-12 [Concomitant]
     Indication: NEUROPATHY PERIPHERAL
  4. SPIRIVA [Suspect]
     Indication: CHRONIC OBSTRUCTIVE PULMONARY DISEASE
     Dosage: 18 MCG
     Route: 055
     Dates: start: 20090101
  5. SYNTHROID [Concomitant]
     Indication: THYROID OPERATION
  6. ASMANEX TWISTHALER [Concomitant]
     Indication: ASTHMA
     Dosage: 2 PUF
     Route: 055
  7. PROAIR HFA [Concomitant]
     Indication: ASTHMA
  8. VITAMIN D [Concomitant]
     Indication: SUPPLEMENTATION THERAPY
  9. PRILOSEC [Concomitant]
     Indication: GASTROOESOPHAGEAL REFLUX DISEASE
  10. AVAPRO [Concomitant]
     Indication: HYPERTENSION
     Dosage: 300 MG
     Route: 048

REACTIONS (6)
  - DYSPHONIA [None]
  - DRY MOUTH [None]
  - STAPHYLOCOCCAL INFECTION [None]
  - HEADACHE [None]
  - SINUSITIS [None]
  - ABDOMINAL PAIN UPPER [None]
